FAERS Safety Report 5509030-X (Version None)
Quarter: 2007Q4

REPORT INFORMATION
  Report Type: 
  Country: None (occurrence: None)
  Receive Date: 20071105
  Receipt Date: 20071031
  Transmission Date: 20080405
  Serious: Yes (Death, Other)
  Sender: FDA-Public Use
  Company Number: 2007SP022040

PATIENT
  Age: 7 Year
  Sex: Female
  Weight: 37 kg

DRUGS (13)
  1. TEMODAL [Suspect]
     Dosage: 150 MG/M2; QD; PO
     Route: 048
     Dates: start: 20061113, end: 20061117
  2. TEMODAL [Suspect]
     Dosage: 150 MG/M2; QD; PO
     Route: 048
     Dates: start: 20061211, end: 20061215
  3. TEMODAL [Suspect]
     Dosage: 150 MG/M2; QD; PO
     Route: 048
     Dates: start: 20070115, end: 20070119
  4. TEMODAL [Suspect]
     Dosage: 150 MG/M2; QD; PO
     Route: 048
     Dates: start: 20070213, end: 20070217
  5. TEMODAL [Suspect]
     Dosage: 150 MG/M2; QD; PO
     Route: 048
     Dates: start: 20070313, end: 20070317
  6. TEMODAL [Suspect]
     Dosage: 150 MG/M2; QD; PO
     Route: 048
     Dates: start: 20070413, end: 20070417
  7. BACTRIM [Concomitant]
  8. GLEEVEC [Concomitant]
  9. RINDERON [Concomitant]
  10. FAMOTIDINE [Concomitant]
  11. ERYTHROCIN [Concomitant]
  12. NAUZELIN [Concomitant]
  13. BONALON [Concomitant]

REACTIONS (2)
  - PANCREATITIS ACUTE [None]
  - TUMOUR HAEMORRHAGE [None]
